FAERS Safety Report 23124011 (Version 1)
Quarter: 2023Q4

REPORT INFORMATION
  Report Type: Spontaneous
  Country: US (occurrence: US)
  Receive Date: 20231030
  Receipt Date: 20231030
  Transmission Date: 20240110
  Serious: Yes (Hospitalization)
  Sender: FDA-Public Use
  Company Number: US-PERRIGO-23US012228

PATIENT
  Sex: Male

DRUGS (1)
  1. POLYETHYLENE GLYCOL 3350 [Suspect]
     Active Substance: POLYETHYLENE GLYCOL 3350
     Indication: Colonoscopy
     Dosage: UNKNOWN, UNKNOWN
     Route: 048
     Dates: start: 202310, end: 202310

REACTIONS (7)
  - Atrial fibrillation [Unknown]
  - Blood potassium abnormal [Unknown]
  - Blood sodium abnormal [Unknown]
  - Blood magnesium abnormal [Unknown]
  - Dizziness [Unknown]
  - Hyperhidrosis [Unknown]
  - Off label use [Recovered/Resolved]

NARRATIVE: CASE EVENT DATE: 20231001
